FAERS Safety Report 17795397 (Version 2)
Quarter: 2020Q2

REPORT INFORMATION
  Report Type: Report from Study
  Country: DE (occurrence: DE)
  Receive Date: 20200515
  Receipt Date: 20200521
  Transmission Date: 20200714
  Serious: Yes (Death, Other)
  Sender: FDA-Public Use
  Company Number: DE-TAKEDA-2020TUS022606

PATIENT
  Age: 81 Year
  Sex: Female
  Weight: 75 kg

DRUGS (11)
  1. TORASEMID-RATIOPHARM [Concomitant]
     Active Substance: TORSEMIDE
     Dosage: 10 MILLIGRAM, QD
     Route: 048
     Dates: start: 20200312, end: 20200426
  2. CANDESARTAN RATIOPHARM [Concomitant]
     Dosage: 8 MILLIGRAM, BID
     Route: 048
     Dates: start: 20200312, end: 20200426
  3. AMLODIPIN-RATIOPHARM [Concomitant]
     Active Substance: AMLODIPINE MALEATE
     Dosage: 5 MILLIGRAM, BID
     Route: 048
     Dates: start: 20200312, end: 20200426
  4. PREGABALIN. [Concomitant]
     Active Substance: PREGABALIN
     Dosage: 50 MILLIGRAM, BID
     Route: 048
     Dates: start: 20200312, end: 20200426
  5. BENDAMUSTINE [Suspect]
     Active Substance: BENDAMUSTINE
     Indication: PLASMA CELL MYELOMA
     Dosage: 102 MILLIGRAM
     Route: 065
     Dates: start: 20200221, end: 20200318
  6. MCP-RATIOPHARM [Concomitant]
     Active Substance: METOCLOPRAMIDE HYDROCHLORIDE
     Dosage: 10 MILLIGRAM, BID
     Route: 048
     Dates: start: 20200312, end: 20200426
  7. METOPROLOL-RATIOPHARM [Concomitant]
     Active Substance: METOPROLOL
     Dosage: 95 MILLIGRAM, BID
     Route: 048
     Dates: start: 20200325, end: 20200426
  8. LEVODOPA/BENSERAZID NEURAXPHARM [Concomitant]
     Active Substance: BENSERAZIDE HYDROCHLORIDE\LEVODOPA
     Dosage: 62.5 MILLIGRAM, TID
     Route: 048
     Dates: start: 20200312, end: 20200426
  9. BORTEZOMIB. [Suspect]
     Active Substance: BORTEZOMIB
     Indication: PLASMA CELL MYELOMA
     Dosage: 2.2 MILLIGRAM
     Route: 065
     Dates: start: 20200221, end: 20200403
  10. LEVODOPA/BENSERAZID NEURAXPHARM [Concomitant]
     Active Substance: BENSERAZIDE HYDROCHLORIDE\LEVODOPA
     Dosage: 125 MILLIGRAM, QD
     Route: 048
     Dates: start: 20200312, end: 20200426
  11. EBRANTIL [Concomitant]
     Active Substance: URAPIDIL
     Dosage: 30 MILLIGRAM, BID
     Route: 048
     Dates: start: 20200325, end: 20200426

REACTIONS (2)
  - Coronary artery disease [Fatal]
  - Uterine cancer [Fatal]

NARRATIVE: CASE EVENT DATE: 20200426
